FAERS Safety Report 18737234 (Version 22)
Quarter: 2023Q2

REPORT INFORMATION
  Report Type: Report from Study
  Country: MX (occurrence: MX)
  Receive Date: 20210113
  Receipt Date: 20230505
  Transmission Date: 20230721
  Serious: Yes (Life-Threatening, Hospitalization, Other)
  Sender: FDA-Public Use
  Company Number: NVSC2020MX138107

PATIENT
  Age: 49 Year
  Sex: Male
  Weight: 54 kg

DRUGS (34)
  1. COSENTYX [Suspect]
     Active Substance: SECUKINUMAB
     Indication: Psoriasis
     Dosage: 2 DOSAGE FORM (150 MG), QMO
     Route: 058
     Dates: start: 201007
  2. COSENTYX [Suspect]
     Active Substance: SECUKINUMAB
     Dosage: 300 MG (2 DOSE), QW
     Route: 058
     Dates: start: 20200318
  3. COSENTYX [Suspect]
     Active Substance: SECUKINUMAB
     Dosage: 300 MG, QMO
     Route: 058
  4. COSENTYX [Suspect]
     Active Substance: SECUKINUMAB
     Dosage: 300 MG, (150MG) QMO
     Route: 058
  5. COSENTYX [Suspect]
     Active Substance: SECUKINUMAB
     Dosage: UNK (TAKEN FOR 5 WEEKS)
     Route: 065
     Dates: start: 20200415
  6. COSENTYX [Suspect]
     Active Substance: SECUKINUMAB
     Dosage: 300 MG, QMO
     Route: 058
     Dates: start: 202005
  7. COSENTYX [Suspect]
     Active Substance: SECUKINUMAB
     Dosage: 300 MG, QMO
     Route: 030
  8. COSENTYX [Suspect]
     Active Substance: SECUKINUMAB
     Dosage: 300 MG, QMO (2 OF 150 MG) (ONE DOSE IN EACH LEG)
     Route: 058
     Dates: start: 202006
  9. COSENTYX [Suspect]
     Active Substance: SECUKINUMAB
     Dosage: 300 MG, (2 DOSE) QMO
     Route: 058
  10. COSENTYX [Suspect]
     Active Substance: SECUKINUMAB
     Dosage: 2 DOSAGE FORM, QW
     Route: 058
     Dates: start: 2020
  11. COSENTYX [Suspect]
     Active Substance: SECUKINUMAB
     Dosage: 300 MG, QMO
     Route: 058
  12. COSENTYX [Suspect]
     Active Substance: SECUKINUMAB
     Dosage: 300 MG, QMO (2 OF 150 MG)
     Route: 058
  13. COSENTYX [Suspect]
     Active Substance: SECUKINUMAB
     Dosage: 150 MG, QMO (2 DF, INJECTABLE SOLUTION)
     Route: 058
     Dates: start: 2020
  14. COSENTYX [Suspect]
     Active Substance: SECUKINUMAB
     Dosage: 300 MG, QMO
     Route: 058
  15. COSENTYX [Suspect]
     Active Substance: SECUKINUMAB
     Dosage: 150 MG
     Route: 065
  16. COSENTYX [Suspect]
     Active Substance: SECUKINUMAB
     Dosage: 300 MG (2 OF 150 MG), QMO (ONE DOSE IN EACH LEG)
     Route: 058
     Dates: end: 202106
  17. COSENTYX [Suspect]
     Active Substance: SECUKINUMAB
     Dosage: UNK UNK, QW
     Route: 065
     Dates: end: 20210708
  18. COSENTYX [Suspect]
     Active Substance: SECUKINUMAB
     Dosage: 300 MG (2X 150 MG), QMO (ONE DOSE IN EACH LEG)
     Route: 058
     Dates: start: 202112, end: 202112
  19. COSENTYX [Suspect]
     Active Substance: SECUKINUMAB
     Dosage: 300 MG (1 DF, START DATE: BETWEEN JUN 2020 OR JUL 2020 APPROXIMATELY)
     Route: 058
  20. COSENTYX [Suspect]
     Active Substance: SECUKINUMAB
     Dosage: 300 MG (2 DOSAGE FORMS OF150 MG),
     Route: 058
     Dates: end: 20220708
  21. COSENTYX [Suspect]
     Active Substance: SECUKINUMAB
     Dosage: 300 MG (2 DOSAGE FORMS OF150 MG), QMO
     Route: 058
     Dates: start: 202208
  22. COSENTYX [Suspect]
     Active Substance: SECUKINUMAB
     Dosage: 300 MG (FREQUENCY: EVERY WEEK FOR 5 WEEKS, AND THEN 300MG MONTHLY)
     Route: 058
     Dates: start: 20220813
  23. COSENTYX [Suspect]
     Active Substance: SECUKINUMAB
     Dosage: 150 MG
     Route: 065
  24. LEVOFLOXACIN [Suspect]
     Active Substance: LEVOFLOXACIN
     Indication: Infection
     Dosage: UNK (AFTER SURGERY ON 08 JUL 2022)
     Route: 065
     Dates: end: 2022
  25. LEVOFLOXACIN [Suspect]
     Active Substance: LEVOFLOXACIN
     Dosage: 1 DOSAGE FORM, QD
     Route: 048
     Dates: start: 20220530, end: 20220602
  26. LEVOFLOXACIN [Suspect]
     Active Substance: LEVOFLOXACIN
     Dosage: 500 MG
     Route: 065
  27. PHENAZOPYRIDINE HYDROCHLORIDE [Suspect]
     Active Substance: PHENAZOPYRIDINE HYDROCHLORIDE
     Indication: Infection
     Dosage: UNK (AFTER SURGERY ON 08 JUL 2021)
     Route: 065
  28. PHENAZOPYRIDINE HYDROCHLORIDE [Suspect]
     Active Substance: PHENAZOPYRIDINE HYDROCHLORIDE
     Dosage: 500 MG
     Route: 065
  29. TASEDAN [Concomitant]
     Indication: Sleep disorder
     Dosage: 2 MG, QD
     Route: 048
     Dates: start: 2017
  30. TASEDAN [Concomitant]
     Dosage: 4 DOSAGE FORM, QD
     Route: 048
     Dates: start: 2018
  31. TASEDAN [Concomitant]
     Dosage: 1 DOSAGE FORM
     Route: 048
     Dates: start: 2019
  32. ALPRAZOLAM [Concomitant]
     Active Substance: ALPRAZOLAM
     Indication: Psychomotor hyperactivity
     Dosage: 2 DOSAGE FORM, QHS (EVERY NIGHT)
     Route: 048
     Dates: start: 2018
  33. ALPRAZOLAM [Concomitant]
     Active Substance: ALPRAZOLAM
     Indication: Anxiety
  34. LOZAM [Concomitant]
     Indication: Sleep disorder
     Dosage: 2 DOSAGE FORM, QD
     Route: 048
     Dates: start: 2018

REACTIONS (100)
  - Urinary retention [Unknown]
  - Stenosis [Unknown]
  - Pain [Unknown]
  - Procedural complication [Not Recovered/Not Resolved]
  - Cardiac tamponade [Unknown]
  - Calculus urinary [Unknown]
  - Dysuria [Not Recovered/Not Resolved]
  - Micturition disorder [Unknown]
  - Blood urine [Recovered/Resolved]
  - Infertility [Unknown]
  - Prostatitis [Recovering/Resolving]
  - Prostatic adenoma [Recovered/Resolved]
  - Blood urine [Recovered/Resolved with Sequelae]
  - Asthma [Unknown]
  - Dyspnoea [Not Recovered/Not Resolved]
  - Bacterial infection [Recovering/Resolving]
  - Hyperplasia [Recovering/Resolving]
  - Urinary tract infection [Not Recovered/Not Resolved]
  - Haematological infection [Unknown]
  - Pyrexia [Recovered/Resolved]
  - Typhoid fever [Unknown]
  - Infarction [Unknown]
  - Lithiasis [Unknown]
  - Abdominal distension [Unknown]
  - Bladder stenosis [Recovered/Resolved with Sequelae]
  - Urethral disorder [Unknown]
  - Infection [Unknown]
  - Neuropathy peripheral [Unknown]
  - Embolism [Unknown]
  - Frontal lobe epilepsy [Unknown]
  - Choking [Unknown]
  - Pneumonitis [Unknown]
  - Prostate infection [Unknown]
  - Abdominal pain [Recovered/Resolved]
  - Decreased immune responsiveness [Unknown]
  - Hypertonic bladder [Not Recovered/Not Resolved]
  - Cystitis [Unknown]
  - Visual impairment [Recovered/Resolved]
  - Vision blurred [Not Recovered/Not Resolved]
  - Feeling abnormal [Unknown]
  - Bladder disorder [Not Recovered/Not Resolved]
  - Movement disorder [Unknown]
  - Urethral pain [Unknown]
  - Abdominal discomfort [Unknown]
  - Fatigue [Not Recovered/Not Resolved]
  - Dysphonia [Unknown]
  - Chest pain [Unknown]
  - Hyperhidrosis [Unknown]
  - Drug hypersensitivity [Unknown]
  - Hypoacusis [Unknown]
  - COVID-19 [Unknown]
  - Lung disorder [Unknown]
  - Blister [Unknown]
  - Fungal skin infection [Recovered/Resolved]
  - Nail disorder [Unknown]
  - Fungal infection [Recovered/Resolved]
  - Prostatic calcification [Unknown]
  - Blood cholesterol abnormal [Unknown]
  - Swollen tongue [Unknown]
  - Tracheal disorder [Unknown]
  - Back pain [Unknown]
  - Cerebral disorder [Not Recovered/Not Resolved]
  - Somnolence [Recovering/Resolving]
  - Oropharyngeal discomfort [Unknown]
  - Fungal skin infection [Recovered/Resolved]
  - Headache [Unknown]
  - Nausea [Recovering/Resolving]
  - Vertigo [Recovering/Resolving]
  - Limb discomfort [Recovering/Resolving]
  - Fungal infection [Unknown]
  - Pollakiuria [Unknown]
  - Injury [Unknown]
  - Disturbance in attention [Unknown]
  - Blood pressure systolic increased [Unknown]
  - Psoriasis [Not Recovered/Not Resolved]
  - Urticaria [Unknown]
  - Scar [Recovered/Resolved]
  - Vision blurred [Recovered/Resolved]
  - Crying [Recovered/Resolved]
  - Depression [Recovering/Resolving]
  - Skin exfoliation [Not Recovered/Not Resolved]
  - Weight increased [Not Recovered/Not Resolved]
  - Weight decreased [Unknown]
  - Condition aggravated [Not Recovered/Not Resolved]
  - Urethritis [Unknown]
  - Anal inflammation [Not Recovered/Not Resolved]
  - Urinary incontinence [Not Recovered/Not Resolved]
  - Anorectal discomfort [Not Recovered/Not Resolved]
  - Dizziness [Recovered/Resolved]
  - Abdominal pain upper [Recovered/Resolved]
  - Head discomfort [Unknown]
  - Cardiac disorder [Unknown]
  - Memory impairment [Unknown]
  - Illness [Unknown]
  - White blood cell count increased [Unknown]
  - Product packaging issue [Unknown]
  - Product use issue [Unknown]
  - Incorrect dose administered [Unknown]
  - Drug ineffective [Recovering/Resolving]
  - Therapeutic product effect incomplete [Not Recovered/Not Resolved]

NARRATIVE: CASE EVENT DATE: 20200318
